FAERS Safety Report 16411357 (Version 2)
Quarter: 2019Q4

REPORT INFORMATION
  Report Type: Spontaneous
  Country: SE (occurrence: SE)
  Receive Date: 20190610
  Receipt Date: 20191010
  Transmission Date: 20200122
  Serious: Yes (Other)
  Sender: FDA-Public Use
  Company Number: SE-COOPERSURGICAL, INC.-SE-2019CPS001683

PATIENT
  Sex: Female

DRUGS (1)
  1. PARAGARD T 380A [Suspect]
     Active Substance: COPPER
     Indication: CONTRACEPTION
     Dosage: UNK
     Route: 015
     Dates: start: 20060613, end: 20190625

REACTIONS (4)
  - Device breakage [Recovered/Resolved]
  - Device use issue [Recovered/Resolved]
  - Complication of device removal [Recovered/Resolved]
  - Foreign body in reproductive tract [Recovered/Resolved]

NARRATIVE: CASE EVENT DATE: 20060613
